FAERS Safety Report 16186206 (Version 1)
Quarter: 2019Q2

REPORT INFORMATION
  Report Type: Report from Study
  Country: IT (occurrence: IT)
  Receive Date: 20190411
  Receipt Date: 20190411
  Transmission Date: 20190711
  Serious: Yes (Other)
  Sender: FDA-Public Use
  Company Number: IT-TEVA-2019-IT-1035109

PATIENT
  Age: 78 Year
  Sex: Male

DRUGS (8)
  1. CORDARONE [Concomitant]
     Active Substance: AMIODARONE HYDROCHLORIDE
     Route: 048
  2. DOBETIN 500 MICROGRAMMI/ML SOLUZIONE INIETTABILE [Concomitant]
     Route: 058
  3. ZOLEDRONIC ACID [Suspect]
     Active Substance: ZOLEDRONIC ACID
     Indication: PROPHYLAXIS
     Route: 058
     Dates: start: 20180626, end: 20180626
  4. NEORECORMON 5000 IU SOLUTION FOR INJECTION IN PRE-FILLED SYRINGE [Concomitant]
     Route: 058
  5. EUTIROX 75 MICROGRAMMI COMPRESSE [Concomitant]
     Active Substance: LEVOTHYROXINE SODIUM
     Route: 048
  6. LOSARTAN IDROCLOROTIAZIDE ALTER 100 MG/25 MG COMPRESSE RIVESTITE CON F [Concomitant]
     Route: 048
  7. AMLODIPINE [Concomitant]
     Active Substance: AMLODIPINE BESYLATE
     Route: 048
  8. DIBASE 300.000 U.I./ML SOLUZIONE INIETTABILE [Concomitant]
     Route: 030

REACTIONS (1)
  - Hyperpyrexia [Recovered/Resolved]

NARRATIVE: CASE EVENT DATE: 20180626
